FAERS Safety Report 23450590 (Version 3)
Quarter: 2024Q1

REPORT INFORMATION
  Report Type: Spontaneous
  Country: FR (occurrence: FR)
  Receive Date: 20240129
  Receipt Date: 20240315
  Transmission Date: 20240409
  Serious: Yes (Death)
  Sender: FDA-Public Use
  Company Number: FR-DECIPHERA PHARMACEUTICALS LLC-2024FR000065

PATIENT
  Sex: Male
  Weight: 81 kg

DRUGS (1)
  1. QINLOCK [Suspect]
     Active Substance: RIPRETINIB
     Indication: Gastrointestinal stromal tumour
     Dosage: 150 MILLIGRAM, QD
     Route: 048
     Dates: start: 20230725, end: 20231109

REACTIONS (2)
  - Disease progression [Fatal]
  - Treatment failure [Unknown]

NARRATIVE: CASE EVENT DATE: 20231107
